FAERS Safety Report 8845393 (Version 1)
Quarter: 2012Q4

REPORT INFORMATION
  Report Type: Spontaneous
  Country: US (occurrence: None)
  Receive Date: 20121015
  Receipt Date: 20121015
  Transmission Date: 20130627
  Serious: Yes (Other)
  Sender: FDA-Public Use
  Company Number: NY120292

PATIENT
  Sex: Male

DRUGS (1)
  1. ALCOHOL [Suspect]
     Indication: THERAPEUTIC SKIN CARE TOPICAL
     Dosage: 70% IPA, 3x/week, topical
     Route: 061
     Dates: start: 201209

REACTIONS (2)
  - Infusion site erythema [None]
  - Staphylococcus test positive [None]
